FAERS Safety Report 6183106-9 (Version None)
Quarter: 2009Q2

REPORT INFORMATION
  Report Type: 
  Country: None (occurrence: None)
  Receive Date: 20090507
  Receipt Date: 20090424
  Transmission Date: 20091009
  Serious: Yes (Hospitalization)
  Sender: FDA-Public Use
  Company Number: CA-NOVOPROD-286426

PATIENT

DRUGS (4)
  1. NOVORAPID [Suspect]
     Indication: TYPE 1 DIABETES MELLITUS
     Dosage: UNK, QD
     Route: 058
  2. DOXYCYCLIN                         /00055701/ [Concomitant]
     Dosage: 100 MG, BID
  3. AMOXICILLIN [Concomitant]
     Dosage: 1500 MG, QD
  4. ADVAIR HFA [Concomitant]
     Dosage: 2 PUFF, BID

REACTIONS (2)
  - BLOOD GLUCOSE INCREASED [None]
  - PNEUMONIA [None]
